FAERS Safety Report 7785633-7 (Version None)
Quarter: 2011Q3

REPORT INFORMATION
  Report Type: 
  Country: None (occurrence: None)
  Receive Date: 20110929
  Receipt Date: 20110920
  Transmission Date: 20111222
  Serious: Yes (Hospitalization, Other)
  Sender: FDA-Public Use
  Company Number: NO-AMGEN-NORSP2011046468

PATIENT
  Age: 85 Year
  Sex: Female

DRUGS (1)
  1. CINACALCET HYDROCHLORIDE [Suspect]
     Indication: HYPERPARATHYROIDISM PRIMARY
     Dosage: 30 MG, BID
     Route: 048
     Dates: start: 20110225, end: 20110313

REACTIONS (3)
  - NAUSEA [None]
  - VOMITING [None]
  - PARATHYROID GLAND OPERATION [None]
